FAERS Safety Report 6139618-7 (Version None)
Quarter: 2009Q2

REPORT INFORMATION
  Report Type: 
  Country: None (occurrence: None)
  Receive Date: 20090401
  Receipt Date: 20090324
  Transmission Date: 20091009
  Serious: Yes (Hospitalization, Congenital Anomaly)
  Sender: FDA-Public Use
  Company Number: US-WYE-H08150409

PATIENT
  Sex: Male
  Weight: 2.27 kg

DRUGS (6)
  1. EFFEXOR XR [Suspect]
     Indication: MAJOR DEPRESSION
     Route: 064
     Dates: start: 20080522, end: 20081116
  2. EFFEXOR XR [Suspect]
     Route: 064
     Dates: start: 20081117, end: 20090101
  3. TRAZODONE HCL [Suspect]
     Indication: INSOMNIA
     Route: 064
     Dates: start: 20080805, end: 20081016
  4. AMBIEN [Suspect]
     Indication: INSOMNIA
     Route: 048
     Dates: start: 20080805, end: 20081001
  5. PROZAC [Suspect]
     Indication: MAJOR DEPRESSION
     Route: 064
     Dates: start: 20070801
  6. PROZAC [Suspect]

REACTIONS (2)
  - CONGENITAL TRICUSPID VALVE ATRESIA [None]
  - DRUG EXPOSURE DURING PREGNANCY [None]
